FAERS Safety Report 24031538 (Version 2)
Quarter: 2025Q2

REPORT INFORMATION
  Report Type: Spontaneous
  Country: CZ (occurrence: CZ)
  Receive Date: 20240629
  Receipt Date: 20250619
  Transmission Date: 20250717
  Serious: Yes (Hospitalization, Other)
  Sender: AUROBINDO
  Company Number: CZ-CZPHARMAP-OLIKLA20240604b_Lit

PATIENT
  Age: 8 Month
  Sex: Male
  Weight: 2.84 kg

DRUGS (4)
  1. ACYCLOVIR [Suspect]
     Active Substance: ACYCLOVIR
     Indication: Antifungal prophylaxis
     Route: 065
  2. FLUCONAZOLE [Suspect]
     Active Substance: FLUCONAZOLE
     Indication: Antifungal prophylaxis
     Route: 065
  3. SULFAMETHOXAZOLE [Suspect]
     Active Substance: SULFAMETHOXAZOLE
     Indication: Antibiotic prophylaxis
     Route: 065
  4. TRIMETHOPRIM [Suspect]
     Active Substance: TRIMETHOPRIM
     Indication: Antibiotic prophylaxis
     Route: 065

REACTIONS (3)
  - Device related sepsis [Unknown]
  - Liver disorder [Unknown]
  - Cholelithiasis [Unknown]
